FAERS Safety Report 6975334-7 (Version None)
Quarter: 2010Q3

REPORT INFORMATION
  Report Type: 
  Country: None (occurrence: None)
  Receive Date: 20100910
  Receipt Date: 20090305
  Transmission Date: 20110219
  Serious: No
  Sender: FDA-Public Use
  Company Number: US-WYE-H08517409

PATIENT
  Age: 70 Year
  Sex: Female
  Weight: 63.56 kg

DRUGS (4)
  1. ADVIL PM [Suspect]
     Indication: PAIN
     Route: 048
     Dates: start: 20090304, end: 20090304
  2. ADVIL PM [Suspect]
     Indication: INSOMNIA
  3. FOSAMAX [Concomitant]
  4. ANASTROZOLE [Concomitant]

REACTIONS (2)
  - ABASIA [None]
  - DISORIENTATION [None]
